FAERS Safety Report 5009108-3 (Version None)
Quarter: 2006Q2

REPORT INFORMATION
  Report Type: 
  Country: None (occurrence: None)
  Receive Date: 20060519
  Receipt Date: 20060515
  Transmission Date: 20061013
  Serious: Yes (Death)
  Sender: FDA-Public Use
  Company Number: 200610548BNE

PATIENT
  Sex: Male
  Weight: 95.2554 kg

DRUGS (2)
  1. NIFEDIPINE [Suspect]
     Dosage: 30 MG, TOTAL DAILY
  2. ATENOLOL [Suspect]
     Dosage: 100 MG, TOTAL DAILY

REACTIONS (1)
  - DEATH [None]
